FAERS Safety Report 15844992 (Version 3)
Quarter: 2019Q2

REPORT INFORMATION
  Report Type: Report from Study
  Country: US (occurrence: US)
  Receive Date: 20190119
  Receipt Date: 20190409
  Transmission Date: 20190711
  Serious: No
  Sender: FDA-Public Use
  Company Number: PHEH2019US002314

PATIENT
  Sex: Male

DRUGS (1)
  1. COSENTYX [Suspect]
     Active Substance: SECUKINUMAB
     Indication: PSORIATIC ARTHROPATHY
     Dosage: 300 MG, QMO
     Route: 058
     Dates: start: 20151214

REACTIONS (6)
  - Infection [Unknown]
  - Fatigue [Unknown]
  - Upper-airway cough syndrome [Unknown]
  - Ill-defined disorder [Unknown]
  - Weight increased [Unknown]
  - Cough [Unknown]
